FAERS Safety Report 17958579 (Version 1)
Quarter: 2020Q2

REPORT INFORMATION
  Report Type: Spontaneous
  Country: IT (occurrence: IT)
  Receive Date: 20200630
  Receipt Date: 20200630
  Transmission Date: 20200714
  Serious: Yes (Other)
  Sender: FDA-Public Use
  Company Number: IT-SUN PHARMACEUTICAL INDUSTRIES LTD-2020R1-251043

PATIENT
  Age: 69 Year
  Sex: Male

DRUGS (5)
  1. PREDNISONE. [Interacting]
     Active Substance: PREDNISONE
     Indication: HORMONE-REFRACTORY PROSTATE CANCER
     Dosage: UNK
     Route: 065
  2. GLICLAZIDE [Interacting]
     Active Substance: GLICLAZIDE
     Indication: TYPE 2 DIABETES MELLITUS
     Dosage: 200 MILLIGRAM, DAILY
     Route: 065
  3. GLICLAZIDE [Interacting]
     Active Substance: GLICLAZIDE
     Dosage: 160 MILLIGRAM, DAILY
     Route: 065
  4. SIMVASTATIN. [Concomitant]
     Active Substance: SIMVASTATIN
     Indication: PRODUCT USED FOR UNKNOWN INDICATION
     Dosage: UNK
     Route: 065
  5. ABIRATERONE. [Suspect]
     Active Substance: ABIRATERONE ACETATE
     Indication: HORMONE-REFRACTORY PROSTATE CANCER
     Dosage: UNK
     Route: 065

REACTIONS (2)
  - Drug interaction [Unknown]
  - Hypoglycaemia [Recovered/Resolved]
